FAERS Safety Report 20391407 (Version 1)
Quarter: 2022Q1

REPORT INFORMATION
  Report Type: Spontaneous
  Country: US (occurrence: None)
  Receive Date: 20220127
  Receipt Date: 20220127
  Transmission Date: 20220423
  Serious: Yes (Disabling)
  Sender: FDA-Public Use
  Company Number: None

PATIENT
  Age: 56 Year
  Sex: Female
  Weight: 72 kg

DRUGS (7)
  1. SALONPAS PAIN RELIEVING HOT [Suspect]
     Active Substance: CAPSICUM\MENTHOL
     Indication: Back pain
     Dosage: OTHER QUANTITY : 1 PATCH(ES);?
     Route: 062
  2. LEVOTHYROXINE [Concomitant]
     Active Substance: LEVOTHYROXINE
  3. AMBIEN [Concomitant]
     Active Substance: ZOLPIDEM TARTRATE
  4. ATIVAN [Concomitant]
     Active Substance: LORAZEPAM
  5. DR. OHHIRA^S PROBIOTICS [Concomitant]
  6. GARDEN OF LIFE VITAMIN CODE RAW ONE FOR WOMEN [Concomitant]
  7. NATURE MADE D3 [Concomitant]

REACTIONS (4)
  - Application site erythema [None]
  - Application site pruritus [None]
  - Application site burn [None]
  - Application site pain [None]

NARRATIVE: CASE EVENT DATE: 20220127
